FAERS Safety Report 7571867-3 (Version None)
Quarter: 2011Q2

REPORT INFORMATION
  Report Type: 
  Country: None (occurrence: None)
  Receive Date: 20110624
  Receipt Date: 20100511
  Transmission Date: 20111010
  Serious: No
  Sender: FDA-Public Use
  Company Number: A0859133A

PATIENT
  Age: 70 Year
  Sex: Female

DRUGS (3)
  1. VERAMYST [Suspect]
     Dosage: 2SPR PER DAY
     Route: 045
     Dates: start: 20100507
  2. SYNTHROID [Concomitant]
  3. PRILOSEC [Concomitant]

REACTIONS (2)
  - PRODUCT QUALITY ISSUE [None]
  - PAIN IN EXTREMITY [None]
